FAERS Safety Report 13151748 (Version 1)
Quarter: 2017Q1

REPORT INFORMATION
  Report Type: Spontaneous
  Country: AT (occurrence: AT)
  Receive Date: 20170125
  Receipt Date: 20170125
  Transmission Date: 20170428
  Serious: Yes (Death, Hospitalization)
  Sender: FDA-Public Use
  Company Number: PHHY2017AT006899

PATIENT
  Age: 84 Year
  Sex: Female

DRUGS (3)
  1. CITALOPRAM [Suspect]
     Active Substance: CITALOPRAM HYDROBROMIDE
     Indication: ANTIDEPRESSANT THERAPY
     Route: 065
  2. CITALOPRAM [Interacting]
     Active Substance: CITALOPRAM HYDROBROMIDE
     Dosage: 20 MG, UNK
     Route: 065
  3. DOXEPINE [Interacting]
     Active Substance: DOXEPIN
     Indication: ANTIDEPRESSANT THERAPY
     Route: 065

REACTIONS (5)
  - Bundle branch block left [Fatal]
  - Conduction disorder [Fatal]
  - Drug interaction [Fatal]
  - Electrocardiogram QT prolonged [Unknown]
  - Syncope [Unknown]
